FAERS Safety Report 6437626-X (Version None)
Quarter: 2009Q4

REPORT INFORMATION
  Report Type: 
  Country: None (occurrence: None)
  Receive Date: 20091112
  Receipt Date: 20091106
  Transmission Date: 20100525
  Serious: Yes (Hospitalization, Congenital Anomaly)
  Sender: FDA-Public Use
  Company Number: A0681887A

PATIENT
  Sex: Female

DRUGS (2)
  1. PAXIL [Suspect]
     Indication: ANXIETY
     Dosage: 20MG PER DAY
     Dates: start: 20000801
  2. VITAMIN TAB [Concomitant]

REACTIONS (20)
  - ANAL ATRESIA [None]
  - ANKYLOGLOSSIA CONGENITAL [None]
  - ATRIAL SEPTAL DEFECT [None]
  - CONGENITAL ABSENCE OF VERTEBRA [None]
  - CONGENITAL SCOLIOSIS [None]
  - DRUG EXPOSURE DURING PREGNANCY [None]
  - FINGER DEFORMITY [None]
  - KYPHOSIS [None]
  - MULTI-ORGAN DISORDER [None]
  - OESOPHAGEAL ATRESIA [None]
  - PATENT DUCTUS ARTERIOSUS [None]
  - RENAL DISORDER [None]
  - SPINA BIFIDA [None]
  - SPINE MALFORMATION [None]
  - TETHERED CORD SYNDROME [None]
  - TOOTH DISORDER [None]
  - TRACHEO-OESOPHAGEAL FISTULA [None]
  - VACTERL SYNDROME [None]
  - VAGINAL DISORDER [None]
  - VESICOURETERIC REFLUX [None]
